FAERS Safety Report 8984408 (Version 1)
Quarter: 2012Q4

REPORT INFORMATION
  Report Type: Report from Study
  Country: PL (occurrence: PL)
  Receive Date: 20121225
  Receipt Date: 20121225
  Transmission Date: 20130627
  Serious: Yes (Life-Threatening, Hospitalization)
  Sender: FDA-Public Use
  Company Number: PL-BRISTOL-MYERS SQUIBB COMPANY-16206930

PATIENT
  Age: 72 Year
  Sex: Male
  Weight: 80 kg

DRUGS (11)
  1. CISPLATIN [Suspect]
     Indication: NON-SMALL CELL LUNG CANCER STAGE IV
     Dosage: Inf:3
Last infusion date: 12 Oct2011,Dose 141.75mg
     Route: 042
     Dates: start: 20110831, end: 20111012
  2. GEMCITABINE HCL [Suspect]
     Indication: NON-SMALL CELL LUNG CANCER STAGE IV
     Dosage: Inf:3
Last infusion date: 12 Oct2011
     Route: 042
     Dates: start: 20110831, end: 20111019
  3. FUROSEMIDE [Concomitant]
     Indication: BLOOD CREATININE INCREASED
     Dates: start: 20110907
  4. KALIPOZ [Concomitant]
     Indication: PROPHYLAXIS
     Dates: start: 20110907
  5. PRESTARIUM [Concomitant]
     Indication: HYPERTENSION
     Dates: start: 2011, end: 2011
  6. PANTOPRAZOLE [Concomitant]
     Dates: start: 2011
  7. ACETYLSALICYLIC ACID [Concomitant]
     Indication: MYOCARDIAL ISCHAEMIA
  8. ISOSORBIDE MONONITRATE [Concomitant]
     Indication: MYOCARDIAL ISCHAEMIA
  9. BISOPROLOL [Concomitant]
     Indication: HYPERTENSION
     Dates: end: 20111014
  10. TRIMETAZIDINE [Concomitant]
     Indication: MYOCARDIAL ISCHAEMIA
     Dates: end: 20111014
  11. ORNITHINE [Concomitant]
     Dates: start: 20110907, end: 20111014

REACTIONS (1)
  - Myocardial infarction [Recovered/Resolved with Sequelae]
